FAERS Safety Report 5767695-1 (Version None)
Quarter: 2008Q2

REPORT INFORMATION
  Report Type: 
  Country: None (occurrence: None)
  Receive Date: 20080609
  Receipt Date: 20080529
  Transmission Date: 20081010
  Serious: Yes (Hospitalization)
  Sender: FDA-Public Use
  Company Number: 2008-01212

PATIENT
  Age: 59 Year
  Sex: Female
  Weight: 109 kg

DRUGS (30)
  1. VELCADE [Suspect]
     Indication: MULTIPLE MYELOMA
     Dosage: 1 MG/M2,
     Dates: start: 20060517, end: 20060630
  2. DEXAMETHASONE TAB [Suspect]
     Indication: MULTIPLE MYELOMA
     Dosage: 40 MG,
     Dates: start: 20060523, end: 20060623
  3. DIOVAN [Concomitant]
  4. FUROSEMIDE [Concomitant]
  5. THALIDOMIDE [Suspect]
     Indication: MULTIPLE MYELOMA
     Dosage: 200 MG,
     Dates: start: 20060523, end: 20060619
  6. CISPLATIN [Suspect]
     Indication: MULTIPLE MYELOMA
     Dosage: 10 MG/M2,
     Dates: start: 20060523, end: 20060623
  7. DOXORUBICIN HCL [Suspect]
     Indication: MULTIPLE MYELOMA
     Dosage: 10 MG/M2,
     Dates: start: 20060523, end: 20060623
  8. CYCLOPHOSPHAMIDE [Suspect]
     Indication: MULTIPLE MYELOMA
     Dosage: 400 MG/M2
     Dates: start: 20060523, end: 20060623
  9. ETOPOSIDE [Suspect]
     Indication: MULTIPLE MYELOMA
     Dosage: 40 MG/M2,
     Dates: start: 20060523, end: 20060623
  10. FEXOFENADINE HYDROCHLORIDE [Concomitant]
  11. VYTORIN [Concomitant]
  12. PAROXETINE HCL [Concomitant]
  13. FLONASE [Concomitant]
  14. DICYCLOMINE HCL [Concomitant]
  15. PROPOXYPHENE NAPSYLATE W/ACETAMINOPHEN (PARACETAMOL, DEXTROPROPOXYPHEN [Concomitant]
  16. LORAZEPAM [Concomitant]
  17. LEVSIN (HYOSCYAMINE SULFATE) [Concomitant]
  18. FLEXERIL (CYCLOBENAZAPRINE HYDROCHLORIDE) [Concomitant]
  19. CARAFATE [Concomitant]
  20. LACTULOSE [Concomitant]
  21. FLAGYL [Concomitant]
  22. FENTANYL [Concomitant]
  23. TUMS (CALCIUM CARBONATE) [Concomitant]
  24. LEVAQUIN [Concomitant]
  25. FLUCONAZOLE [Concomitant]
  26. ACYCLOVIR [Concomitant]
  27. RANITIDINE HYDROCHLORIDE [Concomitant]
  28. REGLAN [Concomitant]
  29. HEPARIN [Concomitant]
  30. SODIUM CHLORIDE 0.9% [Concomitant]

REACTIONS (4)
  - COLITIS [None]
  - CYTOMEGALOVIRUS INFECTION [None]
  - DIZZINESS POSTURAL [None]
  - ENTERITIS [None]
